FAERS Safety Report 17180999 (Version 1)
Quarter: 2019Q4

REPORT INFORMATION
  Report Type: Spontaneous
  Country: US (occurrence: US)
  Receive Date: 20191219
  Receipt Date: 20191219
  Transmission Date: 20200122
  Serious: No
  Sender: FDA-Public Use
  Company Number: US-BAUSCH-BL-2019-064914

PATIENT
  Age: 60 Year
  Sex: Male
  Weight: 88.98 kg

DRUGS (1)
  1. ALREX [Suspect]
     Active Substance: LOTEPREDNOL ETABONATE
     Indication: EYE ALLERGY
     Dosage: SAMPLES, STARTED RECENTLY, TWO DROPS IN THE LEFT EYE BEFORE BEDTIME?PRESCRIPTION DRUG: 09/DEC/2019
     Route: 047
     Dates: start: 2019, end: 201912

REACTIONS (2)
  - Insomnia [Recovered/Resolved]
  - Eye pain [Recovered/Resolved]

NARRATIVE: CASE EVENT DATE: 2019
